FAERS Safety Report 6082428-X (Version None)
Quarter: 2009Q1

REPORT INFORMATION
  Report Type: 
  Country: None (occurrence: None)
  Receive Date: 20090218
  Receipt Date: 20090209
  Transmission Date: 20090719
  Serious: Yes (Disabling)
  Sender: FDA-Public Use
  Company Number: NO-MERCK-0902NOR00008

PATIENT
  Age: 38 Year
  Sex: Female

DRUGS (3)
  1. ZOCOR [Suspect]
     Indication: HYPERCHOLESTEROLAEMIA
     Route: 048
     Dates: start: 20070101, end: 20081212
  2. ZOCOR [Suspect]
     Route: 048
     Dates: start: 20041018, end: 20070101
  3. LEVONORGESTREL [Concomitant]
     Indication: CONTRACEPTION
     Route: 065
     Dates: start: 20040301

REACTIONS (2)
  - NO THERAPEUTIC RESPONSE [None]
  - URTICARIA THERMAL [None]
